FAERS Safety Report 23888239 (Version 1)
Quarter: 2024Q2

REPORT INFORMATION
  Report Type: Spontaneous
  Country: US (occurrence: US)
  Receive Date: 20240523
  Receipt Date: 20240523
  Transmission Date: 20240716
  Serious: Yes (Hospitalization, Other)
  Sender: FDA-Public Use
  Company Number: US-ROCHE-2500756

PATIENT
  Sex: Female

DRUGS (22)
  1. VALGANCICLOVIR [Suspect]
     Active Substance: VALGANCICLOVIR
     Indication: Cytomegalovirus infection
  2. VALGANCICLOVIR [Suspect]
     Active Substance: VALGANCICLOVIR
     Indication: Renal transplant
  3. CELLCEPT [Suspect]
     Active Substance: MYCOPHENOLATE MOFETIL
     Indication: Renal transplant
     Route: 048
     Dates: start: 20190318
  4. AMLODIPINE [Concomitant]
     Active Substance: AMLODIPINE BESYLATE
     Route: 048
  5. CLARITIN [Concomitant]
     Active Substance: LORATADINE
     Route: 048
  6. ECOTRIN [Concomitant]
     Active Substance: ASPIRIN
     Route: 048
  7. FERROUS SULFATE [Concomitant]
     Active Substance: FERROUS SULFATE
     Route: 048
  8. ALBUTEROL\IPRATROPIUM [Concomitant]
     Active Substance: ALBUTEROL\IPRATROPIUM
     Dosage: 0.5 MG-3 MG(2.5 MG BASE)/ 3ML SOLUTION FOR NEBULIZATION
  9. LABETALOL [Concomitant]
     Active Substance: LABETALOL\LABETALOL HYDROCHLORIDE
     Route: 048
  10. LASIX [Concomitant]
     Active Substance: FUROSEMIDE
     Route: 048
  11. LEVOTHYROXINE [Concomitant]
     Active Substance: LEVOTHYROXINE\LEVOTHYROXINE SODIUM
     Route: 048
  12. METOLAZONE [Concomitant]
     Active Substance: METOLAZONE
     Route: 048
  13. NORCO [Concomitant]
     Active Substance: ACETAMINOPHEN\HYDROCODONE BITARTRATE
     Route: 048
  14. NOVOLOG [Concomitant]
     Active Substance: INSULIN ASPART
  15. ONDANSETRON HYDROCHLORIDE [Concomitant]
     Active Substance: ONDANSETRON HYDROCHLORIDE
     Route: 048
  16. POTASSIUM CHLORIDE [Concomitant]
     Active Substance: POTASSIUM CHLORIDE
     Route: 048
  17. PRAVASTATIN [Concomitant]
     Active Substance: PRAVASTATIN
     Route: 048
  18. PREDNISONE [Concomitant]
     Active Substance: PREDNISONE
     Route: 048
  19. REVATIO [Concomitant]
     Active Substance: SILDENAFIL CITRATE
     Route: 048
  20. TACROLIMUS [Concomitant]
     Active Substance: TACROLIMUS
     Route: 048
  21. VITAMIN D3 [Concomitant]
     Active Substance: CHOLECALCIFEROL
     Dosage: 2000 UNIT NOT REPORTED
     Route: 048
  22. ZETIA [Concomitant]
     Active Substance: EZETIMIBE
     Route: 048

REACTIONS (16)
  - Infection [Recovering/Resolving]
  - Arthritis infective [Unknown]
  - Upper-airway cough syndrome [Unknown]
  - Dyspnoea exertional [Unknown]
  - Early satiety [Unknown]
  - Rales [Unknown]
  - Cardiac murmur [Unknown]
  - Oedema peripheral [Unknown]
  - Haemorrhoids [Unknown]
  - Skin ulcer [Unknown]
  - Anal stenosis [Unknown]
  - Obesity [Unknown]
  - Oedema peripheral [Unknown]
  - Thrombotic thrombocytopenic purpura [Unknown]
  - Ill-defined disorder [Unknown]
  - Off label use [Unknown]
